FAERS Safety Report 7064777-1 (Version None)
Quarter: 2010Q4

REPORT INFORMATION
  Report Type: 
  Country: None (occurrence: None)
  Receive Date: 20101027
  Receipt Date: 19850329
  Transmission Date: 20110411
  Serious: Yes (Death)
  Sender: FDA-Public Use
  Company Number: US-ROCHE-850200437001

PATIENT
  Age: 20 Year
  Sex: Female
  Weight: 41.7 kg

DRUGS (7)
  1. KLONOPIN [Suspect]
     Indication: EPILEPSY CONGENITAL
     Route: 048
     Dates: end: 19850403
  2. VALIUM [Suspect]
     Route: 048
  3. PEN-VEE K [Concomitant]
     Route: 065
  4. KEFLEX [Concomitant]
     Route: 065
  5. DILANTIN [Concomitant]
     Route: 065
  6. PHENOBARBITAL [Concomitant]
     Route: 065
  7. VALPROIC ACID [Concomitant]
     Route: 065

REACTIONS (2)
  - LAFORA'S MYOCLONIC EPILEPSY [None]
  - SALIVARY HYPERSECRETION [None]
